FAERS Safety Report 21267600 (Version 3)
Quarter: 2022Q4

REPORT INFORMATION
  Report Type: Spontaneous
  Country: US (occurrence: None)
  Receive Date: 20220829
  Receipt Date: 20221006
  Transmission Date: 20230112
  Serious: No
  Sender: FDA-Public Use
  Company Number: 2022A292463

PATIENT
  Age: 67 Year
  Sex: Male
  Weight: 81.6 kg

DRUGS (5)
  1. BUDESONIDE\FORMOTEROL\GLYCOPYRRONIUM [Suspect]
     Active Substance: BUDESONIDE\FORMOTEROL\GLYCOPYRRONIUM
     Indication: Respiratory disorder
     Dosage: 160/7.2/5.0 MCG, 2 PUFFS TWO TIMES A DAY
     Route: 055
  2. BUDESONIDE\FORMOTEROL\GLYCOPYRRONIUM [Suspect]
     Active Substance: BUDESONIDE\FORMOTEROL\GLYCOPYRRONIUM
     Indication: Emphysema
     Dosage: 160/7.2/5.0 MCG, 2 PUFFS TWO TIMES A DAY
     Route: 055
  3. BUDESONIDE\FORMOTEROL\GLYCOPYRRONIUM [Suspect]
     Active Substance: BUDESONIDE\FORMOTEROL\GLYCOPYRRONIUM
     Indication: Respiratory disorder
     Dosage: 160/7.2/5.0 MCG, 2 PUFFS TWO TIMES A DAY
     Route: 055
     Dates: start: 20210706
  4. BUDESONIDE\FORMOTEROL\GLYCOPYRRONIUM [Suspect]
     Active Substance: BUDESONIDE\FORMOTEROL\GLYCOPYRRONIUM
     Indication: Emphysema
     Dosage: 160/7.2/5.0 MCG, 2 PUFFS TWO TIMES A DAY
     Route: 055
     Dates: start: 20210706
  5. BEVESPI AEROSPHERE [Suspect]
     Active Substance: FORMOTEROL FUMARATE\GLYCOPYRROLATE
     Indication: Respiratory disorder
     Route: 055

REACTIONS (7)
  - Condition aggravated [Unknown]
  - Dyspnoea [Unknown]
  - Drug ineffective [Unknown]
  - Product use issue [Unknown]
  - Device defective [Unknown]
  - Incorrect dose administered by device [Unknown]
  - Device delivery system issue [Unknown]
